FAERS Safety Report 8032904-5 (Version None)
Quarter: 2012Q1

REPORT INFORMATION
  Report Type: 
  Country: None (occurrence: None)
  Receive Date: 20120110
  Receipt Date: 20111228
  Transmission Date: 20120608
  Serious: Yes (Disabling)
  Sender: FDA-Public Use
  Company Number: US-ELI_LILLY_AND_COMPANY-US201201000928

PATIENT
  Sex: Female
  Weight: 43 kg

DRUGS (2)
  1. FORTEO [Suspect]
     Dosage: 20 UG, QOD
  2. FORTEO [Suspect]
     Indication: OSTEOPOROSIS
     Dosage: 20 UG, QD
     Dates: start: 20111001

REACTIONS (13)
  - LIMB DEFORMITY [None]
  - ILL-DEFINED DISORDER [None]
  - NAUSEA [None]
  - GAIT DISTURBANCE [None]
  - RHINORRHOEA [None]
  - INSOMNIA [None]
  - DRUG DOSE OMISSION [None]
  - MUSCLE SPASMS [None]
  - ASTHENIA [None]
  - MUSCULAR WEAKNESS [None]
  - FATIGUE [None]
  - DECREASED APPETITE [None]
  - DIZZINESS [None]
